FAERS Safety Report 21089932 (Version 1)
Quarter: 2022Q3

REPORT INFORMATION
  Report Type: Spontaneous
  Country: NL (occurrence: NL)
  Receive Date: 20220715
  Receipt Date: 20220715
  Transmission Date: 20221026
  Serious: Yes (Death, Hospitalization)
  Sender: FDA-Public Use
  Company Number: NL-FreseniusKabi-FK202209881

PATIENT
  Age: 63 Year
  Sex: Male

DRUGS (6)
  1. PACLITAXEL [Suspect]
     Active Substance: PACLITAXEL
     Indication: Adenocarcinoma gastric
     Dosage: 100 MG/M2 ON DAYS 1, 8, AND 15
     Dates: start: 2019
  2. RITONAVIR [Suspect]
     Active Substance: RITONAVIR
     Indication: HIV test positive
     Dosage: QD
     Dates: start: 2019
  3. carboplatin (Calvert) [Concomitant]
     Indication: Adenocarcinoma gastric
     Dosage: AUC= 4MG MIN/ML (CALVERT)
     Dates: start: 2019
  4. DARUNAVIR [Concomitant]
     Active Substance: DARUNAVIR
     Indication: HIV test positive
     Dosage: QD
     Dates: start: 2019
  5. LAMIVUDINE [Concomitant]
     Active Substance: LAMIVUDINE
     Indication: HIV test positive
     Dosage: Q.D
     Dates: start: 2019
  6. ABACAVIR [Concomitant]
     Active Substance: ABACAVIR
     Indication: HIV test positive
     Dosage: Q.D
     Dates: start: 2019

REACTIONS (2)
  - Neutropenic sepsis [Fatal]
  - Drug interaction [Unknown]
